FAERS Safety Report 22290005 (Version 1)
Quarter: 2023Q2

REPORT INFORMATION
  Report Type: Spontaneous
  Country: US (occurrence: US)
  Receive Date: 20230505
  Receipt Date: 20230505
  Transmission Date: 20230721
  Serious: No
  Sender: FDA-Public Use
  Company Number: US-Calliditas-2023CAL00425

PATIENT
  Age: 42 Year
  Sex: Female

DRUGS (1)
  1. TARPEYO [Suspect]
     Active Substance: BUDESONIDE
     Indication: IgA nephropathy
     Dosage: 16 MG (4 MG CAPSULES) ONCE DAILY
     Route: 048
     Dates: start: 20230207

REACTIONS (6)
  - Nausea [Unknown]
  - Fatigue [Unknown]
  - Malaise [Unknown]
  - Product dose omission issue [Unknown]
  - Peripheral swelling [Unknown]
  - Erythema [Unknown]
